FAERS Safety Report 25727900 (Version 1)
Quarter: 2025Q3

REPORT INFORMATION
  Report Type: Spontaneous
  Country: US (occurrence: None)
  Receive Date: 20250826
  Receipt Date: 20250826
  Transmission Date: 20251020
  Serious: Yes (Hospitalization)
  Sender: FDA-CTU
  Company Number: None

PATIENT

DRUGS (1)
  1. RIVAROXABAN [Suspect]
     Active Substance: RIVAROXABAN

REACTIONS (3)
  - Hypotension [None]
  - Shock haemorrhagic [None]
  - Intra-abdominal haematoma [None]

NARRATIVE: CASE EVENT DATE: 20240614
